FAERS Safety Report 6325069-9 (Version None)
Quarter: 2009Q3

REPORT INFORMATION
  Report Type: 
  Country: None (occurrence: None)
  Receive Date: 20090824
  Receipt Date: 20090707
  Transmission Date: 20100115
  Serious: No
  Sender: FDA-Public Use
  Company Number: US-ABBOTT-09P-163-0584983-00

PATIENT
  Sex: Female
  Weight: 72.186 kg

DRUGS (3)
  1. NIASPAN [Suspect]
     Indication: HIGH DENSITY LIPOPROTEIN DECREASED
     Route: 048
     Dates: start: 20090627
  2. PLAVIX [Concomitant]
     Indication: STENT PLACEMENT
     Route: 048
  3. FLAX SEED [Concomitant]
     Indication: MEDICAL DIET

REACTIONS (1)
  - ABDOMINAL PAIN UPPER [None]
